FAERS Safety Report 4747065-5 (Version None)
Quarter: 2005Q3

REPORT INFORMATION
  Report Type: 
  Country: None (occurrence: None)
  Receive Date: 20050817
  Receipt Date: 20050616
  Transmission Date: 20060218
  Serious: Yes (Other)
  Sender: FDA-Public Use
  Company Number: FR-NOVOPROD-244829

PATIENT
  Age: 85 Year
  Sex: Male
  Weight: 64 kg

DRUGS (4)
  1. NOVOSEVEN [Suspect]
     Indication: CEREBRAL HAEMORRHAGE
     Dosage: 80 UG/KG, SINGLE
     Dates: start: 20050613, end: 20050613
  2. MOLSIDOMINE [Concomitant]
     Dosage: 2 MG, QD
     Route: 048
     Dates: start: 19950101
  3. SOTALOL HCL [Concomitant]
     Dosage: 80 MG, QD
     Route: 048
     Dates: start: 19990101
  4. OMEPRAZOLE [Concomitant]
     Dosage: 40 MG, QD
     Route: 048
     Dates: start: 20050613

REACTIONS (7)
  - ACUTE MYOCARDIAL INFARCTION [None]
  - ATRIAL FIBRILLATION [None]
  - BLOOD PRESSURE SYSTOLIC INCREASED [None]
  - HEART RATE DECREASED [None]
  - HYPOKINESIA [None]
  - TACHYARRHYTHMIA [None]
  - TROPONIN I INCREASED [None]
